FAERS Safety Report 4396320-X (Version None)
Quarter: 2004Q3

REPORT INFORMATION
  Report Type: 
  Country: None (occurrence: None)
  Receive Date: 20040713
  Receipt Date: 20040607
  Transmission Date: 20050211
  Serious: Yes (Hospitalization)
  Sender: FDA-Public Use
  Company Number: 2004010328

PATIENT
  Age: 46 Year
  Sex: Male
  Weight: 55 kg

DRUGS (5)
  1. SEROXAT [Suspect]
     Dosage: 20MG SEE DOSAGE TEXT
     Route: 048
  2. DIMENHYDRINATE [Suspect]
     Dosage: 50MG SEE DOSAGE TEXT
     Route: 048
  3. OMEPRAZOLE [Suspect]
     Dosage: 20MG SEE DOSAGE TEXT
     Route: 048
  4. BAYCILLIN [Suspect]
     Dosage: 700MG SEE DOSAGE TEXT
     Route: 048
  5. BEER [Suspect]
     Dosage: 1BT SEE DOSAGE TEXT
     Route: 048

REACTIONS (4)
  - DRY MOUTH [None]
  - FATIGUE [None]
  - INTENTIONAL OVERDOSE [None]
  - SUICIDE ATTEMPT [None]
